FAERS Safety Report 4526893-5 (Version None)
Quarter: 2004Q4

REPORT INFORMATION
  Report Type: 
  Country: None (occurrence: None)
  Receive Date: 20041213
  Receipt Date: 20041130
  Transmission Date: 20050328
  Serious: Yes (Life-Threatening)
  Sender: FDA-Public Use
  Company Number: 2004AP04026

PATIENT
  Age: 73 Year
  Sex: Male

DRUGS (14)
  1. IRESSA [Suspect]
     Indication: LUNG SQUAMOUS CELL CARCINOMA STAGE UNSPECIFIED
     Dosage: 250 MG DAILY PO
     Route: 048
     Dates: start: 20040726, end: 20040731
  2. IRESSA [Suspect]
     Indication: NON-SMALL CELL LUNG CANCER
     Dosage: 250 MG DAILY PO
     Route: 048
     Dates: start: 20040726, end: 20040731
  3. DUROTEP  JANSSEN [Concomitant]
  4. NOVAMIN [Concomitant]
  5. THEOLONG [Concomitant]
  6. MAGNESIUM OXIDE [Concomitant]
  7. PURSENNID [Concomitant]
  8. GASTER D [Concomitant]
  9. LAXOBERON [Concomitant]
  10. TAXOL [Concomitant]
  11. PARAPLATIN [Concomitant]
  12. GEMZAR [Concomitant]
  13. NAVELBINE [Concomitant]
  14. RADIOTHERAPY [Concomitant]

REACTIONS (4)
  - BLOOD PRESSURE DECREASED [None]
  - BRADYCARDIA [None]
  - INTERSTITIAL LUNG DISEASE [None]
  - PNEUMONIA BACTERIAL [None]
